FAERS Safety Report 5342033-7 (Version None)
Quarter: 2007Q2

REPORT INFORMATION
  Report Type: 
  Country: None (occurrence: None)
  Receive Date: 20070530
  Receipt Date: 20070530
  Transmission Date: 20071010
  Serious: Yes (Hospitalization)
  Sender: FDA-Public Use
  Company Number: None

PATIENT
  Age: 75 Year
  Sex: Male
  Weight: 98 kg

DRUGS (11)
  1. WARFARIN SODIUM [Suspect]
     Indication: ATRIAL FIBRILLATION
     Dosage: 2.5MG DAILY PO
     Route: 048
     Dates: start: 19940101, end: 20070529
  2. WARFARIN SODIUM [Concomitant]
  3. ALLOPURINOL [Concomitant]
  4. DIGOXIN [Concomitant]
  5. LISINOPRIL [Concomitant]
  6. OMEPRAZOLE [Concomitant]
  7. VERAPAMIL [Concomitant]
  8. IRON SUPPLEMENT - NIFEREX - [Concomitant]
  9. ASCORBIC ACID [Concomitant]
  10. VIT B [Concomitant]
  11. PREDNISONE TAB [Concomitant]

REACTIONS (3)
  - DISEASE RECURRENCE [None]
  - HAEMORRHAGE [None]
  - RECTAL HAEMORRHAGE [None]
